FAERS Safety Report 22201368 (Version 2)
Quarter: 2023Q2

REPORT INFORMATION
  Report Type: Spontaneous
  Country: JP (occurrence: JP)
  Receive Date: 20230412
  Receipt Date: 20230626
  Transmission Date: 20230721
  Serious: Yes (Death, Other)
  Sender: FDA-Public Use
  Company Number: JP-DSJP-DSJ-2023-112934

PATIENT
  Age: 70 Year
  Sex: Male

DRUGS (2)
  1. DENOSUMAB [Suspect]
     Active Substance: DENOSUMAB
     Indication: Metastases to bone
     Dosage: UNK
     Route: 058
  2. DENOSUMAB [Suspect]
     Active Substance: DENOSUMAB
     Dosage: UNK  *SINGLE
     Route: 058

REACTIONS (2)
  - Disease progression [Fatal]
  - Osteonecrosis of jaw [Not Recovered/Not Resolved]
